FAERS Safety Report 19552807 (Version 4)
Quarter: 2021Q3

REPORT INFORMATION
  Report Type: Spontaneous
  Country: CA (occurrence: CA)
  Receive Date: 20210715
  Receipt Date: 20210918
  Transmission Date: 20211014
  Serious: Yes (Other)
  Sender: FDA-Public Use
  Company Number: CA-CELLTRION INC.-2021CA008145

PATIENT

DRUGS (11)
  1. INFLECTRA [Suspect]
     Active Substance: INFLIXIMAB-DYYB
     Dosage: 1000 MG EVERY 4 WEEKS
     Route: 042
     Dates: start: 20210907
  2. PREDNISONE. [Concomitant]
     Active Substance: PREDNISONE
     Dosage: 35 MG
  3. INFLECTRA [Suspect]
     Active Substance: INFLIXIMAB-DYYB
     Dosage: 1000 MG EVERY 4 WEEKS
     Route: 042
     Dates: start: 20210708
  4. INFLECTRA [Suspect]
     Active Substance: INFLIXIMAB-DYYB
     Dosage: 500 MG WEEK 0,2,6 THEN EVERY 8 WEEKS
     Route: 042
     Dates: start: 20210521
  5. INFLECTRA [Suspect]
     Active Substance: INFLIXIMAB-DYYB
     Dosage: 500MG WEEK 0,2,6 THEN EVERY 8 WEEKS
     Route: 042
     Dates: start: 20210421
  6. INFLECTRA [Suspect]
     Active Substance: INFLIXIMAB-DYYB
     Dosage: 500 MG WEEK 0,2,6 THEN EVERY 8 WEEKS
     Route: 042
     Dates: start: 20210521
  7. CORTISONE [Concomitant]
     Active Substance: CORTISONE
     Dosage: ^4^ CORTISONE 4 AND WILL BE REDUCED TO 3 NEXT TUESDAY
     Route: 048
  8. CORTISONE [Concomitant]
     Active Substance: CORTISONE
     Dosage: ^3^ CORTISONE 4 AND WILL BE REDUCED TO 3 NEXT TUESDAY
     Route: 048
  9. INFLECTRA [Suspect]
     Active Substance: INFLIXIMAB-DYYB
     Indication: CROHN^S DISEASE
     Dosage: 500MG WEEK 0,2,6 THEN EVERY 8 WEEKS
     Route: 042
     Dates: start: 20210408, end: 20210521
  10. PREDNISONE. [Concomitant]
     Active Substance: PREDNISONE
     Indication: COLITIS
     Dosage: UNK (TAPERING DOSE)
  11. INFLECTRA [Suspect]
     Active Substance: INFLIXIMAB-DYYB
     Dosage: 1000 MG EVERY 4 WEEKS
     Route: 042
     Dates: start: 20210810

REACTIONS (6)
  - Weight increased [Unknown]
  - Inappropriate schedule of product administration [Unknown]
  - Tremor [Not Recovered/Not Resolved]
  - Off label use [Unknown]
  - Condition aggravated [Unknown]
  - Fatigue [Not Recovered/Not Resolved]

NARRATIVE: CASE EVENT DATE: 2021
